FAERS Safety Report 13444289 (Version 1)
Quarter: 2017Q2

REPORT INFORMATION
  Report Type: Spontaneous
  Country: ES (occurrence: ES)
  Receive Date: 20170414
  Receipt Date: 20170414
  Transmission Date: 20170830
  Serious: Yes (Other)
  Sender: FDA-Public Use
  Company Number: ES-TAKEDA-2017TUS007690

PATIENT
  Age: 42 Year
  Sex: Female
  Weight: 60 kg

DRUGS (6)
  1. PREDNISONE. [Concomitant]
     Active Substance: PREDNISONE
     Indication: COLITIS ULCERATIVE
     Dosage: 60 MG, UNK
     Route: 042
     Dates: start: 20161227
  2. CICLOSPORINE [Concomitant]
     Active Substance: CYCLOSPORINE
     Indication: COLITIS ULCERATIVE
     Dosage: 600 MG, UNK
     Route: 048
     Dates: start: 20170202
  3. INFLIXIMAB [Concomitant]
     Active Substance: INFLIXIMAB
     Indication: COLITIS ULCERATIVE
     Dosage: UNK
     Route: 042
     Dates: start: 20170116, end: 20170130
  4. COTRIMOXAZOL [Concomitant]
     Active Substance: SULFAMETHOXAZOLE\TRIMETHOPRIM
     Indication: INFECTION PROPHYLAXIS
     Dosage: 800 MG, UNK
     Route: 048
     Dates: start: 20170122
  5. ENTYVIO [Suspect]
     Active Substance: VEDOLIZUMAB
     Indication: COLITIS ULCERATIVE
     Dosage: 300 MG, UNK
     Route: 042
     Dates: start: 20170216
  6. AZATHIOPRINE. [Concomitant]
     Active Substance: AZATHIOPRINE
     Indication: COLITIS ULCERATIVE
     Dosage: 100 MG, UNK
     Route: 048
     Dates: start: 20150515

REACTIONS (1)
  - Varicella zoster virus infection [Recovered/Resolved with Sequelae]

NARRATIVE: CASE EVENT DATE: 20170224
